FAERS Safety Report 6871331-0 (Version None)
Quarter: 2010Q3

REPORT INFORMATION
  Report Type: 
  Country: None (occurrence: None)
  Receive Date: 20100723
  Receipt Date: 20100712
  Transmission Date: 20110219
  Serious: Yes (Hospitalization)
  Sender: FDA-Public Use
  Company Number: JP-ELI_LILLY_AND_COMPANY-JP201007002160

PATIENT
  Age: 74 Year
  Sex: Male

DRUGS (11)
  1. HUMALOG [Suspect]
     Indication: DIABETES MELLITUS
     Dosage: 20 U, DAILY (1/D)
     Route: 058
     Dates: start: 20080226
  2. HUMALOG [Suspect]
     Dosage: 8 U, DAILY (1/D)
     Route: 058
     Dates: start: 20100226
  3. HUMALOG MIX 50/50 [Suspect]
     Indication: DIABETES MELLITUS
     Dosage: 12 U, DAILY (1/D)
     Route: 058
     Dates: start: 20080222
  4. NU-LOTAN /JPN/ [Concomitant]
     Indication: HYPERTENSION
     Dosage: 50 MG, DAILY (1/D)
     Route: 048
     Dates: start: 20080304
  5. COVERSYL [Concomitant]
     Indication: HYPERTENSION
     Dosage: 8 MG, DAILY (1/D)
     Route: 048
     Dates: start: 20080308
  6. GASTER D /JPN/ [Concomitant]
     Indication: GASTRITIS
     Dosage: 20 MG, DAILY (1/D)
     Route: 048
     Dates: start: 20080308
  7. THEOLONG [Concomitant]
     Indication: ASTHMA
     Dosage: 200 MG, DAILY (1/D)
     Route: 048
     Dates: start: 20080806
  8. ASPIRIN [Concomitant]
     Indication: MYOCARDIAL INFARCTION
     Dosage: 100 MG, DAILY (1/D)
     Route: 048
     Dates: start: 20080303
  9. HERBESSER R [Concomitant]
     Indication: MYOCARDIAL INFARCTION
     Dosage: 100 MG, DAILY (1/D)
     Route: 048
     Dates: start: 20080303
  10. LIPITOR [Concomitant]
     Indication: HYPERLIPIDAEMIA
     Dosage: 10 MG, DAILY (1/D)
     Route: 048
     Dates: start: 20080303
  11. ZYLORIC [Concomitant]
     Indication: HYPERURICAEMIA
     Dosage: 100 MG, DAILY (1/D)
     Route: 048
     Dates: start: 20080304

REACTIONS (4)
  - ANTI-INSULIN ANTIBODY POSITIVE [None]
  - CEREBRAL HAEMORRHAGE [None]
  - GLYCOSYLATED HAEMOGLOBIN INCREASED [None]
  - LIPOATROPHY [None]
